FAERS Safety Report 4437448-5 (Version None)
Quarter: 2004Q3

REPORT INFORMATION
  Report Type: 
  Country: None (occurrence: None)
  Receive Date: 20040830
  Receipt Date: 20031211
  Transmission Date: 20050211
  Serious: Yes (Life-Threatening, Disabling, Other)
  Sender: FDA-Public Use
  Company Number: US-MERCK-0312USA01297

PATIENT
  Age: 66 Year
  Sex: Female

DRUGS (8)
  1. GEMFIBROZIL [Suspect]
     Indication: HYPERCHOLESTEROLAEMIA
     Route: 048
     Dates: start: 20031001, end: 20031101
  2. GLIPIZIDE [Concomitant]
     Route: 065
  3. MAXZIDE [Concomitant]
     Route: 065
  4. LEVOXYL [Concomitant]
     Route: 065
  5. GLUCOPHAGE [Concomitant]
     Route: 065
  6. PROPRANOLOL HYDROCHLORIDE [Concomitant]
     Route: 065
  7. ZOCOR [Suspect]
     Indication: BLOOD CHOLESTEROL INCREASED
     Route: 048
     Dates: start: 19970101, end: 20030101
  8. ZOCOR [Suspect]
     Route: 048
     Dates: start: 20040101, end: 20040101

REACTIONS (12)
  - ARTHRALGIA [None]
  - ASTHENIA [None]
  - CEREBROVASCULAR ACCIDENT [None]
  - DIZZINESS [None]
  - HYPOAESTHESIA [None]
  - INSOMNIA [None]
  - MOBILITY DECREASED [None]
  - MUSCLE ATROPHY [None]
  - MYALGIA [None]
  - PAIN IN EXTREMITY [None]
  - PARAESTHESIA [None]
  - SLEEP DISORDER DUE TO GENERAL MEDICAL CONDITION, INSOMNIA TYPE [None]
